FAERS Safety Report 11697009 (Version 7)
Quarter: 2016Q3

REPORT INFORMATION
  Report Type: Spontaneous
  Country: US (occurrence: US)
  Receive Date: 20151104
  Receipt Date: 20160711
  Transmission Date: 20161109
  Serious: Yes (Hospitalization)
  Sender: FDA-Public Use
  Company Number: US-ACTELION-A-NJ2015-126590

PATIENT
  Age: 53 Year
  Sex: Female

DRUGS (3)
  1. REVATIO [Concomitant]
     Active Substance: SILDENAFIL CITRATE
  2. REMODULIN [Concomitant]
     Active Substance: TREPROSTINIL
  3. OPSUMIT [Suspect]
     Active Substance: MACITENTAN
     Indication: PULMONARY ARTERIAL HYPERTENSION
     Dosage: 10 MG, QD
     Route: 048
     Dates: start: 20150318

REACTIONS (12)
  - Device dislocation [Unknown]
  - Lung disorder [Unknown]
  - Pneumonia [Unknown]
  - Renal failure [Unknown]
  - Cardiac failure [Unknown]
  - Anaemia [Unknown]
  - Dyspnoea [Unknown]
  - Peripheral swelling [Unknown]
  - Catheter placement [Unknown]
  - Device infusion issue [Unknown]
  - Pulmonary arterial hypertension [Unknown]
  - Device occlusion [Unknown]

NARRATIVE: CASE EVENT DATE: 20151129
